FAERS Safety Report 14396873 (Version 1)
Quarter: 2018Q1

REPORT INFORMATION
  Report Type: Spontaneous
  Country: TR (occurrence: TR)
  Receive Date: 20180116
  Receipt Date: 20180116
  Transmission Date: 20180509
  Serious: Yes (Hospitalization, Other)
  Sender: FDA-Public Use
  Company Number: TR-BAUSCH-BL-2018-000830

PATIENT
  Age: 45 Year
  Sex: Male

DRUGS (6)
  1. TAXOTERE [Suspect]
     Active Substance: DOCETAXEL
     Indication: NASOPHARYNGEAL CANCER
     Dosage: EVERY CYCLE
     Route: 065
  2. TAXOTERE [Suspect]
     Active Substance: DOCETAXEL
     Indication: METASTASIS
  3. CISPLATIN. [Suspect]
     Active Substance: CISPLATIN
     Indication: NASOPHARYNGEAL CANCER
     Dosage: EVERY THREE WEEKS
     Route: 065
     Dates: start: 20130903
  4. FLUOROURACIL. [Suspect]
     Active Substance: FLUOROURACIL
     Indication: NASOPHARYNGEAL CANCER
     Dosage: EVERY CYCLE
     Route: 065
  5. FLUOROURACIL. [Suspect]
     Active Substance: FLUOROURACIL
     Indication: METASTASIS
  6. CISPLATIN. [Suspect]
     Active Substance: CISPLATIN
     Indication: METASTASIS
     Dosage: EVERY CYCLE
     Route: 065
     Dates: end: 20131022

REACTIONS (7)
  - Neutropenia [Unknown]
  - Epistaxis [Recovered/Resolved]
  - Mucosal inflammation [Unknown]
  - Oesophagitis [Unknown]
  - Vascular pseudoaneurysm [Recovered/Resolved]
  - Dermatitis [Unknown]
  - Alopecia [Unknown]

NARRATIVE: CASE EVENT DATE: 2013
